FAERS Safety Report 13093210 (Version 1)
Quarter: 2017Q1

REPORT INFORMATION
  Report Type: Spontaneous
  Country: US (occurrence: US)
  Receive Date: 20170106
  Receipt Date: 20170106
  Transmission Date: 20170428
  Serious: No
  Sender: FDA-Public Use
  Company Number: US-ASTRAZENECA-2017SE00929

PATIENT

DRUGS (1)
  1. SYNAGIS [Suspect]
     Active Substance: PALIVIZUMAB
     Dosage: DOSE AND FREQUENCY UNKNOWN
     Route: 030

REACTIONS (2)
  - Malaise [Unknown]
  - Respiratory syncytial virus test positive [Unknown]
